FAERS Safety Report 4895352-2 (Version None)
Quarter: 2006Q1

REPORT INFORMATION
  Report Type: 
  Country: None (occurrence: None)
  Receive Date: 20060124
  Receipt Date: 20060112
  Transmission Date: 20060701
  Serious: Yes (Other)
  Sender: FDA-Public Use
  Company Number: 2006BH000626

PATIENT
  Age: 38 Year
  Sex: Female

DRUGS (4)
  1. METHYLPREDNISOLONE [Suspect]
     Dosage: 500 MG; EVERY DAY; IV
     Route: 042
  2. IMMUNE GLOBULIN (HUMAN) [Suspect]
     Dosage: 2 G/KG; EVERY 2 MO; IV
     Route: 042
  3. CYCLOPHOSPHAMIDE [Concomitant]
  4. MITOXANTRONE [Concomitant]

REACTIONS (6)
  - C-REACTIVE PROTEIN INCREASED [None]
  - DEEP VEIN THROMBOSIS [None]
  - HYPERPROTEINAEMIA [None]
  - PLATELET COUNT INCREASED [None]
  - RED BLOOD CELL SEDIMENTATION RATE INCREASED [None]
  - WHITE BLOOD CELL COUNT INCREASED [None]
